FAERS Safety Report 21964123 (Version 1)
Quarter: 2023Q1

REPORT INFORMATION
  Report Type: Spontaneous
  Country: US (occurrence: None)
  Receive Date: 20230206
  Receipt Date: 20230206
  Transmission Date: 20230417
  Serious: Yes (Disabling)
  Sender: FDA-Public Use
  Company Number: None

PATIENT
  Age: 87 Year
  Sex: Male
  Weight: 167 kg

DRUGS (8)
  1. SYMBICORT [Suspect]
     Active Substance: BUDESONIDE\FORMOTEROL FUMARATE DIHYDRATE
     Indication: Chronic obstructive pulmonary disease
     Dosage: FREQUENCY : TWICE A DAY;?
     Route: 055
     Dates: start: 20221218
  2. MONTELUKAST [Concomitant]
     Active Substance: MONTELUKAST SODIUM
  3. FLUTICASONE [Concomitant]
     Active Substance: FLUTICASONE
  4. LISINOPRIL [Concomitant]
     Active Substance: LISINOPRIL
  5. IRON [Concomitant]
     Active Substance: IRON
  6. FELODIPINE [Concomitant]
     Active Substance: FELODIPINE
  7. ATENOLOL [Concomitant]
     Active Substance: ATENOLOL
  8. INCRUSE INHALER [Concomitant]

REACTIONS (2)
  - Aphonia [None]
  - Throat irritation [None]

NARRATIVE: CASE EVENT DATE: 20221220
